FAERS Safety Report 10771264 (Version 4)
Quarter: 2017Q1

REPORT INFORMATION
  Report Type: Spontaneous
  Country: US (occurrence: US)
  Receive Date: 20150206
  Receipt Date: 20170215
  Transmission Date: 20170428
  Serious: Yes (Other)
  Sender: FDA-Public Use
  Company Number: US-PFIZER INC-2015042295

PATIENT
  Age: 49 Year
  Sex: Female

DRUGS (42)
  1. EFFEXOR XR [Suspect]
     Active Substance: VENLAFAXINE HYDROCHLORIDE
     Indication: DEPRESSION
     Dosage: UNK
     Route: 048
     Dates: start: 2009
  2. EFFEXOR XR [Suspect]
     Active Substance: VENLAFAXINE HYDROCHLORIDE
     Dosage: 75 MG, 1X/DAY
     Route: 048
  3. PLAQUENIL [Concomitant]
     Active Substance: HYDROXYCHLOROQUINE SULFATE
     Indication: MIGRAINE
  4. PHENERGAN [Concomitant]
     Active Substance: PROMETHAZINE HYDROCHLORIDE
     Indication: NAUSEA
     Dosage: 25MG TAB 0.5-1 TAB EVERY 8 TO 12 HOURS AS NEEDED
     Route: 048
     Dates: start: 20140825
  5. PHENERGAN [Concomitant]
     Active Substance: PROMETHAZINE HYDROCHLORIDE
     Indication: MIGRAINE WITHOUT AURA
  6. LYRICA [Concomitant]
     Active Substance: PREGABALIN
     Indication: PAIN
  7. ABILIFY [Concomitant]
     Active Substance: ARIPIPRAZOLE
     Indication: PAIN
  8. KLONOPIN [Concomitant]
     Active Substance: CLONAZEPAM
     Indication: ANXIETY
     Dosage: 4 MG, DAILY (2 MG 2 TABS DAILY AT BEDTIME)
     Route: 048
     Dates: start: 20141029
  9. PLAQUENIL [Concomitant]
     Active Substance: HYDROXYCHLOROQUINE SULFATE
     Indication: PAIN
  10. ATARAX [Concomitant]
     Active Substance: HYDROXYZINE HYDROCHLORIDE
     Indication: PRURITUS
     Dosage: 25 MG, AS NEEDED (25MG TAB 1 TAB EVERY 8 HOURS AS NEEDED)
     Route: 048
     Dates: start: 20140219
  11. METHADOSE [Concomitant]
     Active Substance: METHADONE HYDROCHLORIDE
     Indication: PAIN
     Dosage: 5 MG, AS NEEDED (5MG TAB 1 TAB EVERY 12 HOURS AS NEEDED)
     Route: 048
     Dates: start: 20141231
  12. REMERON [Concomitant]
     Active Substance: MIRTAZAPINE
     Indication: DEPRESSION
     Dosage: 60 MG, 1X/DAY (30MG TAB 2 TAB DAILY AT BEDTIME)
     Route: 048
     Dates: start: 20150118
  13. REMERON [Concomitant]
     Active Substance: MIRTAZAPINE
     Indication: PAIN
  14. WELLBUTRIN [Concomitant]
     Active Substance: BUPROPION HYDROCHLORIDE
     Dosage: 75 MG TAB 1 TAB, 2X/DAY
     Route: 048
     Dates: start: 201501
  15. VITAMIN D2 [Concomitant]
     Active Substance: ERGOCALCIFEROL
     Indication: PAIN
  16. METHADOSE [Concomitant]
     Active Substance: METHADONE HYDROCHLORIDE
     Indication: MIGRAINE
  17. VIVACTIL [Concomitant]
     Active Substance: PROTRIPTYLINE HYDROCHLORIDE
     Indication: FIBROMYALGIA
  18. TOPAMAX [Concomitant]
     Active Substance: TOPIRAMATE
     Indication: MIGRAINE WITHOUT AURA
     Dosage: 37.5 MG (25 MG TAB 1.5 TABS), 2X/DAY
     Route: 048
     Dates: start: 20140924
  19. EFFEXOR XR [Suspect]
     Active Substance: VENLAFAXINE HYDROCHLORIDE
     Dosage: 150 MG, 3X/DAY
     Route: 048
     Dates: start: 20141029
  20. VITAMIN D2 [Concomitant]
     Active Substance: ERGOCALCIFEROL
     Indication: VITAMIN D DEFICIENCY
     Dosage: 50000 IU, WEEKLY (50000 UNIT CAP 1 CAP EVERY 7 DAYS)
     Route: 048
     Dates: start: 20140305
  21. VIVACTIL [Concomitant]
     Active Substance: PROTRIPTYLINE HYDROCHLORIDE
     Indication: PAIN
  22. IMITREX [Concomitant]
     Active Substance: SUMATRIPTAN SUCCINATE
     Indication: MIGRAINE WITHOUT AURA
     Dosage: 1 DF (20MG NASAL SOLUTION 1 SPRAY TO 1 NOSTRIL ONCE) AS NEEDED
     Route: 045
     Dates: start: 20140514
  23. LYRICA [Concomitant]
     Active Substance: PREGABALIN
     Indication: MIGRAINE
     Dosage: UNK
  24. VITAMIN D2 [Concomitant]
     Active Substance: ERGOCALCIFEROL
     Indication: MIGRAINE
  25. VIVACTIL [Concomitant]
     Active Substance: PROTRIPTYLINE HYDROCHLORIDE
     Indication: MIGRAINE WITHOUT AURA
     Dosage: 10 MG, DAILY (10MG TAB 1 TAB DAILY AT BEDTIME)
     Route: 048
     Dates: start: 20140226
  26. TOPAMAX [Concomitant]
     Active Substance: TOPIRAMATE
     Dosage: 50 MG, 2X/DAY
     Route: 048
  27. KEPPRA [Concomitant]
     Active Substance: LEVETIRACETAM
     Indication: PAIN
  28. CYTOMEL [Concomitant]
     Active Substance: LIOTHYRONINE SODIUM
     Dosage: 5 ?G, DAILY
     Route: 048
  29. EFFEXOR XR [Suspect]
     Active Substance: VENLAFAXINE HYDROCHLORIDE
     Dosage: 200 MG, UNK
     Route: 048
  30. PLAQUENIL [Concomitant]
     Active Substance: HYDROXYCHLOROQUINE SULFATE
     Indication: FIBROMYALGIA
     Dosage: 200 MG TAB 1 TAB, DAILY
     Route: 048
     Dates: start: 20140910
  31. METHADOSE [Concomitant]
     Active Substance: METHADONE HYDROCHLORIDE
     Indication: MIGRAINE WITHOUT AURA
  32. VIVACTIL [Concomitant]
     Active Substance: PROTRIPTYLINE HYDROCHLORIDE
     Indication: MIGRAINE
  33. KEPPRA [Concomitant]
     Active Substance: LEVETIRACETAM
     Indication: MIGRAINE
     Dosage: UNK
  34. ABILIFY [Concomitant]
     Active Substance: ARIPIPRAZOLE
     Indication: DEPRESSION
     Dosage: 5 MG TAB 1 TAB, DAILY
     Route: 048
     Dates: start: 20141029
  35. COLASE [Concomitant]
     Indication: CONSTIPATION
     Dosage: 100 MG CAP 1 CAP, 2X/DAY
     Route: 048
     Dates: start: 20131127
  36. ABILIFY [Concomitant]
     Active Substance: ARIPIPRAZOLE
     Indication: MIGRAINE
  37. WELLBUTRIN [Concomitant]
     Active Substance: BUPROPION HYDROCHLORIDE
     Indication: DEPRESSION
     Dosage: 75 MG TAB 1 TAB, 1X/DAY
     Route: 048
     Dates: start: 20150106, end: 201501
  38. REMERON [Concomitant]
     Active Substance: MIRTAZAPINE
     Indication: MIGRAINE
  39. ZOFRAN [Concomitant]
     Active Substance: ONDANSETRON HYDROCHLORIDE
     Indication: NAUSEA
     Dosage: 8 MG, AS NEEDED (8MG 1 TAB ON TONGUE AND LET DISSOLVE EVERY 12 HOURS AS NEEDED )
     Route: 048
     Dates: start: 20141015
  40. ZOFRAN [Concomitant]
     Active Substance: ONDANSETRON HYDROCHLORIDE
     Indication: MIGRAINE WITHOUT AURA
  41. VIVACTIL [Concomitant]
     Active Substance: PROTRIPTYLINE HYDROCHLORIDE
     Indication: DEPRESSION
  42. SYNTHROID [Concomitant]
     Active Substance: LEVOTHYROXINE SODIUM
     Indication: HYPOTHYROIDISM
     Dosage: 100 ?G, DAILY (100 MCG TAB 1 TAB DAILY)
     Route: 048
     Dates: start: 20140910

REACTIONS (6)
  - Suicide attempt [Unknown]
  - Suicidal ideation [Unknown]
  - Upper limb fracture [Unknown]
  - Intentional overdose [Unknown]
  - Nausea [Unknown]
  - Drug tolerance [Unknown]
